FAERS Safety Report 7790716-1 (Version None)
Quarter: 2011Q3

REPORT INFORMATION
  Report Type: 
  Country: None (occurrence: None)
  Receive Date: 20110930
  Receipt Date: 20090120
  Transmission Date: 20111222
  Serious: Yes (Hospitalization, Other)
  Sender: FDA-Public Use
  Company Number: PHHY2010TW47357

PATIENT
  Sex: Female

DRUGS (3)
  1. GLEEVEC [Suspect]
     Indication: GASTROINTESTINAL STROMAL TUMOUR
     Dosage: 400 MG, UNK
     Route: 048
  2. GLEEVEC [Suspect]
     Dosage: 4 PILLS
  3. GLEEVEC [Suspect]
     Dosage: 2 PILLS, 2 TIMES PER DAY

REACTIONS (12)
  - NASOPHARYNGITIS [None]
  - DISCOMFORT [None]
  - DECREASED APPETITE [None]
  - COUGH [None]
  - HERPES ZOSTER [None]
  - ABNORMAL FAECES [None]
  - PAIN [None]
  - POLLAKIURIA [None]
  - CALCULUS URETERIC [None]
  - DYSURIA [None]
  - INSOMNIA [None]
  - HAEMATURIA [None]
